FAERS Safety Report 23034344 (Version 1)
Quarter: 2023Q4

REPORT INFORMATION
  Report Type: Spontaneous
  Country: US (occurrence: None)
  Receive Date: 20231005
  Receipt Date: 20231005
  Transmission Date: 20240110
  Serious: No
  Sender: FDA-Public Use
  Company Number: None

PATIENT
  Sex: Female

DRUGS (1)
  1. ORILISSA [Suspect]
     Active Substance: ELAGOLIX SODIUM
     Indication: Endometriosis
     Dosage: FREQUENCY : DAILY;?
     Route: 048
     Dates: start: 202308

REACTIONS (3)
  - Drug ineffective [None]
  - Hot flush [None]
  - Headache [None]
